FAERS Safety Report 24748440 (Version 1)
Quarter: 2024Q4

REPORT INFORMATION
  Report Type: Spontaneous
  Country: CN (occurrence: CN)
  Receive Date: 20241218
  Receipt Date: 20241218
  Transmission Date: 20250115
  Serious: Yes (Other)
  Sender: BAXTER
  Company Number: None

PATIENT
  Age: 70 Year
  Sex: Female
  Weight: 65 kg

DRUGS (6)
  1. CYCLOPHOSPHAMIDE [Suspect]
     Active Substance: CYCLOPHOSPHAMIDE
     Indication: Breast cancer female
     Dosage: 800 MG, ONE TIME IN ONE DAY, DILUTED WITH 100 ML OF 0.9% SODIUM CHLORIDE, INTRAVENOUS DRIP ST
     Route: 041
     Dates: start: 20241128, end: 20241128
  2. CYCLOPHOSPHAMIDE [Suspect]
     Active Substance: CYCLOPHOSPHAMIDE
     Indication: Chemotherapy
  3. DEXTROSE [Suspect]
     Active Substance: DEXTROSE MONOHYDRATE
     Indication: Medication dilution
     Dosage: (5%) 100 ML, ONE TIME IN ONE DAY, USED TO DILUTE 80 MG PIRARUBICIN HYDROCHLORIDE, INTRAVENOUS DRIP S
     Route: 041
     Dates: start: 20241128, end: 20241128
  4. SODIUM CHLORIDE [Suspect]
     Active Substance: SODIUM CHLORIDE
     Indication: Medication dilution
     Dosage: (0.9%) 100 ML, ONE TIME IN ONE DAY, USED TO DILUTE 800 MG CYCLOPHOSPHAMIDE, INTRAVENOUS DRIP ST
     Route: 041
     Dates: start: 20241128, end: 20241128
  5. PIRARUBICIN HYDROCHLORIDE [Suspect]
     Active Substance: PIRARUBICIN HYDROCHLORIDE
     Indication: Breast cancer female
     Dosage: 80 MG, ONE TIME IN ONE DAY, DILUTED WITH 100 ML OF 5% GLUCOSE INJECTION, INTRAVENOUS DRIP ST
     Route: 041
     Dates: start: 20241128, end: 20241128
  6. PIRARUBICIN HYDROCHLORIDE [Suspect]
     Active Substance: PIRARUBICIN HYDROCHLORIDE
     Indication: Chemotherapy

REACTIONS (1)
  - Myelosuppression [Recovering/Resolving]

NARRATIVE: CASE EVENT DATE: 20241204
